FAERS Safety Report 12181076 (Version 1)
Quarter: 2016Q1

REPORT INFORMATION
  Report Type: Spontaneous
  Country: FR (occurrence: FR)
  Receive Date: 20160315
  Receipt Date: 20160315
  Transmission Date: 20160526
  Serious: Yes (Hospitalization)
  Sender: FDA-Public Use
  Company Number: FR-JNJFOC-20160307324

PATIENT
  Age: 34 Year
  Sex: Male

DRUGS (5)
  1. CLOZAPINE. [Suspect]
     Active Substance: CLOZAPINE
     Indication: SCHIZOPHRENIA
     Dosage: 1DF/12 HOURS (1 IN THE MORNING AND 1 IN THE EVENING)??25 MG PER DAY
     Route: 048
     Dates: start: 20151221
  2. HALDOL DECANOATE [Suspect]
     Active Substance: HALOPERIDOL DECANOATE
     Indication: SCHIZOPHRENIA
     Dosage: 0.0333 DF/DAY
     Route: 058
     Dates: start: 20151218
  3. CLOZAPINE. [Suspect]
     Active Substance: CLOZAPINE
     Indication: SCHIZOPHRENIA
     Dosage: 1DF/12 HOURS (1 IN THE MORNING AND 1 IN THE EVENING)??DOSE GRADUALLY INCREASED FROM 25 MG PER DAY
     Route: 048
  4. HALDOL DECANOATE [Suspect]
     Active Substance: HALOPERIDOL DECANOATE
     Indication: SCHIZOPHRENIA
     Dosage: 0.0333 DF/DAY
     Route: 058
     Dates: start: 20160217
  5. CLOZAPINE. [Suspect]
     Active Substance: CLOZAPINE
     Indication: SCHIZOPHRENIA
     Dosage: 1DF/12 HOURS (1 IN THE MORNING AND 1 IN THE EVENING)??200 MG PER DAY
     Route: 048
     Dates: start: 20151231

REACTIONS (1)
  - Pericarditis [Recovering/Resolving]

NARRATIVE: CASE EVENT DATE: 20160101
